FAERS Safety Report 6914472-1 (Version None)
Quarter: 2010Q3

REPORT INFORMATION
  Report Type: 
  Country: None (occurrence: None)
  Receive Date: 20100809
  Receipt Date: 20100802
  Transmission Date: 20110219
  Serious: Yes (Hospitalization)
  Sender: FDA-Public Use
  Company Number: FR-PFIZER INC-2010096682

PATIENT
  Age: 67 Year
  Sex: Male

DRUGS (10)
  1. SOLU-MEDROL [Suspect]
     Dosage: UNK
     Route: 042
     Dates: start: 20070729, end: 20080301
  2. DOXORUBICIN [Suspect]
     Indication: LYMPHOMA
     Dosage: UNK
     Route: 042
     Dates: start: 20070729, end: 20080301
  3. BLEOMYCIN [Suspect]
     Dosage: UNK
     Route: 042
     Dates: start: 20070729, end: 20071128
  4. VELBE [Suspect]
     Dosage: UNK
     Route: 042
     Dates: start: 20070729, end: 20080301
  5. DETICENE [Suspect]
     Dosage: UNK
     Route: 042
     Dates: start: 20070729, end: 20080301
  6. TAHOR [Concomitant]
     Dosage: 10MG DAILY
  7. NISISCO [Concomitant]
     Dosage: 80MG DAILY
  8. ZYLORIC ^FRESENIUS^ [Concomitant]
     Dosage: 100MG DAILY
  9. NOCTAMID [Concomitant]
     Dosage: 2MG DAILY
  10. CORTANCYL [Concomitant]
     Dosage: 20MG DAILY

REACTIONS (2)
  - INTERSTITIAL LUNG DISEASE [None]
  - PULMONARY FIBROSIS [None]
